FAERS Safety Report 5643616-7 (Version None)
Quarter: 2008Q1

REPORT INFORMATION
  Report Type: 
  Country: None (occurrence: None)
  Receive Date: 20080228
  Receipt Date: 20080222
  Transmission Date: 20080703
  Serious: Yes (Hospitalization)
  Sender: FDA-Public Use
  Company Number: US-PFIZER INC-2007089744

PATIENT
  Age: 20 Year
  Sex: Male
  Weight: 67 kg

DRUGS (6)
  1. SU-011,248 [Suspect]
     Indication: EWING'S SARCOMA METASTATIC
     Dosage: DAILY DOSE:15MG/M2-FREQ:CYCLIC: ON DAYS 1-28, EVERY 42 DAYS.
     Route: 048
     Dates: start: 20070829, end: 20070925
  2. OXYCODONE HCL [Concomitant]
  3. OXYCONTIN [Concomitant]
  4. MIRALAX [Concomitant]
  5. NEXIUM [Concomitant]
  6. NEUTRA-PHOS [Concomitant]

REACTIONS (3)
  - DIASTOLIC DYSFUNCTION [None]
  - LEFT VENTRICULAR DYSFUNCTION [None]
  - MYOCARDIAL ISCHAEMIA [None]
